FAERS Safety Report 8623551 (Version 2)
Quarter: 2012Q4

REPORT INFORMATION
  Report Type: 
  Country: AU (occurrence: AU)
  Receive Date: 20120620
  Receipt Date: 20121026
  Transmission Date: 20130627
  Serious: Yes (Other)
  Sender: FDA-Public Use
  Company Number: AU-MILLENNIUM PHARMACEUTICALS, INC.-2012-04146

PATIENT

DRUGS (3)
  1. VELCADE [Suspect]
     Indication: MULTIPLE MYELOMA
     Dosage: 1.3 mg/m2, UNK
     Route: 042
     Dates: start: 200912, end: 201206
  2. THALIDOMIDE [Concomitant]
  3. DEXAMETHASONE [Concomitant]

REACTIONS (1)
  - Cardiomyopathy [Not Recovered/Not Resolved]
